FAERS Safety Report 8090157-6 (Version None)
Quarter: 2012Q1

REPORT INFORMATION
  Report Type: 
  Country: None (occurrence: None)
  Receive Date: 20120129
  Receipt Date: 20111019
  Transmission Date: 20120608
  Serious: No
  Sender: FDA-Public Use
  Company Number: US-ABBOTT-11P-163-0866603-00

PATIENT
  Sex: Female

DRUGS (17)
  1. LEVOTHROID [Concomitant]
     Indication: THYROID DISORDER
     Dosage: DAILY
  2. CALCIUM CARBONATE [Concomitant]
     Indication: ABDOMINAL DISCOMFORT
  3. NEPHRONEX [Concomitant]
     Indication: SINUSITIS
  4. HUMIRA [Suspect]
     Indication: RHEUMATOID ARTHRITIS
     Route: 058
     Dates: start: 20110927
  5. DICYCLOMINE [Concomitant]
     Indication: ABDOMINAL DISCOMFORT
  6. ELAVIL [Concomitant]
     Indication: NERVOUS SYSTEM DISORDER
     Dosage: AT BEDTIME
  7. METHOTREXATE [Concomitant]
     Indication: ARTHRITIS
     Dosage: WEEKLY
  8. ALPRAZOLAM [Concomitant]
     Indication: ANXIETY
  9. SENOKOT [Concomitant]
     Indication: CONSTIPATION PROPHYLAXIS
  10. CYMBALTA [Concomitant]
     Indication: ARTHRITIS
     Dosage: DAILY
  11. ALLOPURINOL [Concomitant]
     Indication: GOUT
     Dosage: DAILY
  12. EYE TEARS [Concomitant]
     Indication: PRODUCT USED FOR UNKNOWN INDICATION
  13. EAR WAX [Concomitant]
     Indication: CERUMEN REMOVAL
  14. METFFORMIN HYDROCHLORIDE [Concomitant]
     Indication: DIABETES MELLITUS
     Dosage: DAILY
  15. FOLIC ACID [Concomitant]
     Indication: VITAMIN SUPPLEMENTATION
     Dosage: DAILY
  16. TRAMADOL HCL [Concomitant]
     Indication: PAIN
  17. BENICAR HCT [Concomitant]
     Indication: HYPERTENSION
     Dosage: 40/25MG DAILY

REACTIONS (2)
  - PAIN IN EXTREMITY [None]
  - INJECTION SITE PAIN [None]
